FAERS Safety Report 6425520-X (Version None)
Quarter: 2009Q4

REPORT INFORMATION
  Report Type: 
  Country: None (occurrence: None)
  Receive Date: 20091103
  Receipt Date: 20091023
  Transmission Date: 20100525
  Serious: Yes (Hospitalization)
  Sender: FDA-Public Use
  Company Number: JP-PFIZER INC-2009288723

PATIENT
  Age: 45 Year
  Sex: Female

DRUGS (1)
  1. NORVASC [Suspect]
     Dosage: 5 MG, DAILY

REACTIONS (3)
  - ASTHENIA [None]
  - BLOOD CREATINE PHOSPHOKINASE INCREASED [None]
  - HYPOKALAEMIA [None]
